FAERS Safety Report 24575081 (Version 1)
Quarter: 2024Q4

REPORT INFORMATION
  Report Type: Spontaneous
  Country: BG (occurrence: BG)
  Receive Date: 20241104
  Receipt Date: 20241104
  Transmission Date: 20250114
  Serious: Yes (Other)
  Sender: NOVITIUM PHARMA
  Company Number: BG-NOVITIUMPHARMA-2024BGNVP02433

PATIENT
  Age: 87 Year
  Sex: Female

DRUGS (9)
  1. BISOPROLOL FUMARATE [Suspect]
     Active Substance: BISOPROLOL FUMARATE
     Indication: Hypertension
  2. HYDROCHLOROTHIAZIDE\LISINOPRIL [Concomitant]
     Active Substance: HYDROCHLOROTHIAZIDE\LISINOPRIL
     Indication: Hypertension
  3. HYDROCHLOROTHIAZIDE\LISINOPRIL [Concomitant]
     Active Substance: HYDROCHLOROTHIAZIDE\LISINOPRIL
     Dosage: HYDROCHLOROTHIAZIDE
  4. PROPAFENONE [Concomitant]
     Active Substance: PROPAFENONE
     Indication: Hypertension
  5. PROPAFENONE [Concomitant]
     Active Substance: PROPAFENONE
  6. CARBAMAZEPINE [Concomitant]
     Active Substance: CARBAMAZEPINE
     Indication: Trigeminal neuralgia
  7. BENFOTIAMINE [Concomitant]
     Active Substance: BENFOTIAMINE
     Indication: Trigeminal neuralgia
  8. PYRIDOXINE [Concomitant]
     Active Substance: PYRIDOXINE
     Indication: Trigeminal neuralgia
  9. CYANOCOBALAMIN [Concomitant]
     Active Substance: CYANOCOBALAMIN
     Indication: Trigeminal neuralgia

REACTIONS (4)
  - Basal cell carcinoma [Unknown]
  - Skin cancer [Unknown]
  - Squamous cell carcinoma [Unknown]
  - Keratoacanthoma [Unknown]
